FAERS Safety Report 13478038 (Version 1)
Quarter: 2017Q2

REPORT INFORMATION
  Report Type: Spontaneous
  Country: US (occurrence: US)
  Receive Date: 20170425
  Receipt Date: 20170425
  Transmission Date: 20170830
  Serious: No
  Sender: FDA-Public Use
  Company Number: None

PATIENT
  Age: 65 Year
  Sex: Male
  Weight: 78 kg

DRUGS (2)
  1. 0.9% SODIUM CHLORIDE INJECTION [Suspect]
     Active Substance: SODIUM CHLORIDE
     Indication: DRUG THERAPY
     Dosage: OTHER FREQUENCY:PRESSURE BAG;?
     Route: 013
     Dates: start: 20170321, end: 20170321
  2. 10% DEXTROSE INJECTION [Suspect]
     Active Substance: DEXTROSE
     Indication: WRONG TECHNIQUE IN PRODUCT USAGE PROCESS
     Dosage: OTHER FREQUENCY:PRESSURE BAG;?
     Route: 013
     Dates: start: 20170322, end: 20170322

REACTIONS (2)
  - Wrong drug administered [None]
  - Product label confusion [None]

NARRATIVE: CASE EVENT DATE: 20170322
